FAERS Safety Report 12993072 (Version 3)
Quarter: 2017Q1

REPORT INFORMATION
  Report Type: Report from Study
  Country: JP (occurrence: JP)
  Receive Date: 20161202
  Receipt Date: 20170130
  Transmission Date: 20170428
  Serious: Yes (Death, Other)
  Sender: FDA-Public Use
  Company Number: JP-ROCHE-1860605

PATIENT

DRUGS (6)
  1. BEVACIZUMAB [Suspect]
     Active Substance: BEVACIZUMAB
     Indication: COLORECTAL CANCER METASTATIC
     Dosage: DAY 01?FOLFIRI  GROUP A
     Route: 042
  2. CAPECITABINE. [Suspect]
     Active Substance: CAPECITABINE
     Indication: COLORECTAL CANCER METASTATIC
     Dosage: DAY 1-14, REPEATED EVERY 3 WEEKS
     Route: 048
  3. IRINOTECAN [Suspect]
     Active Substance: IRINOTECAN
     Indication: COLORECTAL CANCER METASTATIC
     Route: 042
  4. FLUOROURACIL. [Suspect]
     Active Substance: FLUOROURACIL
     Indication: COLORECTAL CANCER METASTATIC
     Route: 042
  5. FOLINIC ACID [Suspect]
     Active Substance: LEUCOVORIN
     Indication: COLORECTAL CANCER METASTATIC
     Route: 042
  6. BEVACIZUMAB [Suspect]
     Active Substance: BEVACIZUMAB
     Dosage: DAY 01?XELIRI GROUP 2
     Route: 042

REACTIONS (13)
  - Leukopenia [Unknown]
  - Neutropenia [Unknown]
  - Diarrhoea [Unknown]
  - Neutrophil count decreased [Unknown]
  - Gastrointestinal perforation [Unknown]
  - Febrile neutropenia [Unknown]
  - White blood cell count decreased [Unknown]
  - Embolism [Unknown]
  - Death [Fatal]
  - Palmar-plantar erythrodysaesthesia syndrome [Unknown]
  - Hypertension [Unknown]
  - Anaemia [Unknown]
  - Haemorrhage [Unknown]
